FAERS Safety Report 5014693-1 (Version None)
Quarter: 2006Q2

REPORT INFORMATION
  Report Type: 
  Country: None (occurrence: None)
  Receive Date: 20060518
  Receipt Date: 20060510
  Transmission Date: 20061013
  Serious: Yes (Other)
  Sender: FDA-Public Use
  Company Number: 200610146BBE

PATIENT

DRUGS (1)
  1. GAMIMUNE N 10% [Suspect]

REACTIONS (1)
  - HAEMOLYSIS [None]
